FAERS Safety Report 7067786-1 (Version None)
Quarter: 2010Q4

REPORT INFORMATION
  Report Type: 
  Country: None (occurrence: None)
  Receive Date: 20101028
  Receipt Date: 20100820
  Transmission Date: 20110411
  Serious: No
  Sender: FDA-Public Use
  Company Number: A0865073A

PATIENT
  Age: 70 Year
  Sex: Female

DRUGS (1)
  1. SEREVENT [Suspect]
     Indication: ASTHMA
     Dosage: 1PUFF TWICE PER DAY
     Route: 055
     Dates: start: 19971001

REACTIONS (9)
  - ASTHENIA [None]
  - FATIGUE [None]
  - LETHARGY [None]
  - LISTLESS [None]
  - PRODUCT QUALITY ISSUE [None]
  - SLEEP DISORDER [None]
  - SLUGGISHNESS [None]
  - SOMNOLENCE [None]
  - TREATMENT NONCOMPLIANCE [None]
